FAERS Safety Report 12706997 (Version 1)
Quarter: 2016Q3

REPORT INFORMATION
  Report Type: Report from Study
  Country: BR (occurrence: BR)
  Receive Date: 20160901
  Receipt Date: 20160901
  Transmission Date: 20161109
  Serious: Yes (Other)
  Sender: FDA-Public Use
  Company Number: PHHY2016BR118432

PATIENT
  Age: 84 Year
  Sex: Female
  Weight: 80 kg

DRUGS (1)
  1. EXELON PATCH [Suspect]
     Active Substance: RIVASTIGMINE
     Indication: DEMENTIA
     Dosage: PATCH 10 CM2, QD
     Route: 062

REACTIONS (4)
  - Vomiting [Unknown]
  - Ankle fracture [Unknown]
  - Mobility decreased [Unknown]
  - Gastrooesophageal reflux disease [Unknown]

NARRATIVE: CASE EVENT DATE: 201608
